FAERS Safety Report 7925004-3 (Version None)
Quarter: 2011Q4

REPORT INFORMATION
  Report Type: 
  Country: None (occurrence: None)
  Receive Date: 20111118
  Receipt Date: 20110330
  Transmission Date: 20120403
  Serious: No
  Sender: FDA-Public Use
  Company Number: US-AMGEN-USASP2011016955

PATIENT
  Age: 64 Year
  Sex: Female
  Weight: 61.678 kg

DRUGS (2)
  1. ENBREL [Suspect]
     Indication: PSORIATIC ARTHROPATHY
     Dosage: 50 MG, QWK
     Dates: start: 20040225
  2. ENBREL [Suspect]
     Indication: PSORIASIS

REACTIONS (1)
  - PSORIATIC ARTHROPATHY [None]
